FAERS Safety Report 5748517-1 (Version None)
Quarter: 2008Q2

REPORT INFORMATION
  Report Type: 
  Country: None (occurrence: None)
  Receive Date: 20080523
  Receipt Date: 20080514
  Transmission Date: 20081010
  Serious: Yes (Other)
  Sender: FDA-Public Use
  Company Number: AU-PFIZER INC-2008041979

PATIENT
  Age: 26 Year
  Sex: Female

DRUGS (1)
  1. ZELDOX (CAPSULES) [Suspect]
     Indication: SCHIZOPHRENIA
     Route: 048

REACTIONS (4)
  - AKATHISIA [None]
  - DYSARTHRIA [None]
  - GAZE PALSY [None]
  - MUSCLE TWITCHING [None]
